FAERS Safety Report 25828387 (Version 1)
Quarter: 2025Q3

REPORT INFORMATION
  Report Type: Spontaneous
  Country: JP (occurrence: JP)
  Receive Date: 20250921
  Receipt Date: 20250921
  Transmission Date: 20251020
  Serious: Yes (Other)
  Sender: JOHNSON AND JOHNSON
  Company Number: JP-JNJFOC-20250912346

PATIENT
  Age: 85 Year
  Sex: Male

DRUGS (16)
  1. APALUTAMIDE [Suspect]
     Active Substance: APALUTAMIDE
     Indication: Hormone-refractory prostate cancer
     Route: 048
  2. LEUPROLIDE ACETATE [Suspect]
     Active Substance: LEUPROLIDE ACETATE
     Indication: Hormone-refractory prostate cancer
  3. BICALUTAMIDE [Suspect]
     Active Substance: BICALUTAMIDE
     Indication: Hormone-refractory prostate cancer
  4. ASPIRIN [Concomitant]
     Active Substance: ASPIRIN
     Indication: Product used for unknown indication
  5. CARVEDILOL [Concomitant]
     Active Substance: CARVEDILOL
     Indication: Product used for unknown indication
  6. AZELNIDIPINE [Concomitant]
     Active Substance: AZELNIDIPINE
     Indication: Product used for unknown indication
  7. CANDESARTAN [Concomitant]
     Active Substance: CANDESARTAN
     Indication: Product used for unknown indication
  8. ESOMEPRAZOLE [Concomitant]
     Active Substance: ESOMEPRAZOLE
     Indication: Product used for unknown indication
  9. ROSUVASTATIN [Concomitant]
     Active Substance: ROSUVASTATIN
     Indication: Product used for unknown indication
  10. ALOGLIPTIN [Concomitant]
     Active Substance: ALOGLIPTIN
     Indication: Product used for unknown indication
  11. MAGNESIUM OXIDE [Concomitant]
     Active Substance: MAGNESIUM OXIDE
     Indication: Product used for unknown indication
  12. REBAMIPIDE [Concomitant]
     Active Substance: REBAMIPIDE
     Indication: Product used for unknown indication
  13. ETIZOLAM [Concomitant]
     Active Substance: ETIZOLAM
     Indication: Insomnia
  14. MEPENZOLATE [Concomitant]
     Indication: Abdominal pain
  15. LOXOPROFEN SODIUM [Concomitant]
     Active Substance: LOXOPROFEN SODIUM
     Indication: Product used for unknown indication
  16. DEGARELIX ACETATE [Concomitant]
     Active Substance: DEGARELIX ACETATE
     Indication: Product used for unknown indication

REACTIONS (3)
  - Pulmonary toxicity [Recovering/Resolving]
  - Drug eruption [Recovering/Resolving]
  - Cross sensitivity reaction [Unknown]
